FAERS Safety Report 25385478 (Version 1)
Quarter: 2025Q2

REPORT INFORMATION
  Report Type: Spontaneous
  Country: JP (occurrence: JP)
  Receive Date: 20250602
  Receipt Date: 20250602
  Transmission Date: 20250716
  Serious: Yes (Death, Other)
  Sender: MERCK SHARP & DOHME LLC
  Company Number: JP-MSD-M2024-53494

PATIENT
  Age: 70 Year
  Sex: Male

DRUGS (3)
  1. KEYTRUDA [Suspect]
     Active Substance: PEMBROLIZUMAB
     Indication: Non-small cell lung cancer stage IV
     Dosage: DOSE DESCRIPTION : 200 MILLIGRAM, Q3W?DAILY DOSE : 9.4 MILLIGRAM?REGIMEN DOSE : 200  MILLIGRAM?EN...
     Route: 041
     Dates: start: 20241111
  2. GEMCITABINE HYDROCHLORIDE [Suspect]
     Active Substance: GEMCITABINE HYDROCHLORIDE
     Indication: Non-small cell lung cancer stage IV
     Dosage: DOSE DESCRIPTION : 1000 MILLIGRAM, QW?DAILY DOSE : 143 MILLIGRAM?REGIMEN DOSE : 1000  MILLIGRAM?E...
     Route: 041
     Dates: start: 20241111, end: 20241111
  3. CISPLATIN [Suspect]
     Active Substance: CISPLATIN
     Indication: Non-small cell lung cancer stage IV
     Dosage: DOSE DESCRIPTION : 75 MILLIGRAM, Q3W?DAILY DOSE : 3.525 MILLIGRAM?REGIMEN DOSE : 75  MILLIGRAM?EN...
     Route: 041
     Dates: start: 20241111

REACTIONS (6)
  - Myocarditis [Fatal]
  - Malignant neoplasm progression [Unknown]
  - Erythema [Recovering/Resolving]
  - Malaise [Recovering/Resolving]
  - Pyrexia [Recovering/Resolving]
  - Drug ineffective [Unknown]

NARRATIVE: CASE EVENT DATE: 20240101
